FAERS Safety Report 26085921 (Version 1)
Quarter: 2025Q4

REPORT INFORMATION
  Report Type: Spontaneous
  Country: TH (occurrence: TH)
  Receive Date: 20251125
  Receipt Date: 20251125
  Transmission Date: 20260118
  Serious: No
  Sender: ALKEM
  Company Number: TH-ALKEM LABORATORIES LIMITED-CN-ALKEM-2025-09236

PATIENT
  Age: 45 Year
  Sex: Female

DRUGS (2)
  1. METFORMIN HYDROCHLORIDE [Suspect]
     Active Substance: METFORMIN HYDROCHLORIDE
     Indication: Diabetes mellitus
     Dosage: 500 MG/DAY (EVERY MORNING)
     Route: 048
  2. METFORMIN HYDROCHLORIDE [Suspect]
     Active Substance: METFORMIN HYDROCHLORIDE
     Dosage: UNK (REINTRODUCED DOSE)
     Route: 065

REACTIONS (1)
  - Insomnia [Recovered/Resolved]
